FAERS Safety Report 4597611-X (Version None)
Quarter: 2005Q1

REPORT INFORMATION
  Report Type: 
  Country: None (occurrence: None)
  Receive Date: 20050228
  Receipt Date: 20050228
  Transmission Date: 20050727
  Serious: Yes (Hospitalization)
  Sender: FDA-Public Use
  Company Number: None

PATIENT
  Sex: Male

DRUGS (11)
  1. FUROSEMIDE [Suspect]
     Indication: CARDIAC FAILURE CONGESTIVE
     Dosage: 40 MG BID ORAL
     Route: 048
  2. ASPIRIN [Concomitant]
  3. CAPTOPRIL [Concomitant]
  4. COMBIVENT [Concomitant]
  5. IBUPROFEN [Concomitant]
  6. LOVASTATIN [Concomitant]
  7. NICOTINE [Concomitant]
  8. NICOTINE [Concomitant]
  9. OMEPRAZOLE [Concomitant]
  10. PAROXETINE HCL [Concomitant]
  11. POTASSIUM CHLORIDE [Concomitant]

REACTIONS (3)
  - DIZZINESS POSTURAL [None]
  - HYPOKALAEMIA [None]
  - HYPOVOLAEMIA [None]
